FAERS Safety Report 22721560 (Version 2)
Quarter: 2024Q3

REPORT INFORMATION
  Report Type: Spontaneous
  Country: US (occurrence: US)
  Receive Date: 20230719
  Receipt Date: 20240723
  Transmission Date: 20241016
  Serious: No
  Sender: OTSUKA
  Company Number: US-OTSUKA-2023_013600

PATIENT
  Sex: Male
  Weight: 77.11 kg

DRUGS (2)
  1. REXULTI [Suspect]
     Active Substance: BREXPIPRAZOLE
     Indication: Depression
     Dosage: 1 MG, QD (TAKING SINCE PAST 3 MONTHS)
     Route: 065
  2. PROZAC [Concomitant]
     Active Substance: FLUOXETINE HYDROCHLORIDE
     Indication: Product used for unknown indication
     Dosage: 40 MG (TAKING SINCE 3 TO 4 YEARS NOW)
     Route: 065

REACTIONS (1)
  - False positive investigation result [Not Recovered/Not Resolved]
